FAERS Safety Report 7543985-7 (Version None)
Quarter: 2011Q2

REPORT INFORMATION
  Report Type: 
  Country: None (occurrence: None)
  Receive Date: 20110613
  Receipt Date: 20041015
  Transmission Date: 20111010
  Serious: Yes (Hospitalization)
  Sender: FDA-Public Use
  Company Number: PHHO2004ES14594

PATIENT
  Age: 73 Year
  Sex: Male

DRUGS (7)
  1. MST [Concomitant]
  2. ZOLEDRONIC ACID [Suspect]
     Indication: METASTASES TO BONE
     Route: 042
     Dates: start: 20031104
  3. EULEXIN [Concomitant]
  4. DECAPEPTYL [Concomitant]
  5. NEOBRUFEN [Concomitant]
  6. SEVREDOL [Concomitant]
  7. ACABEL [Concomitant]

REACTIONS (4)
  - GENERAL PHYSICAL HEALTH DETERIORATION [None]
  - VOMITING [None]
  - ABDOMINAL PAIN [None]
  - CONSTIPATION [None]
